FAERS Safety Report 8337965-1 (Version None)
Quarter: 2012Q2

REPORT INFORMATION
  Report Type: 
  Country: None (occurrence: None)
  Receive Date: 20120504
  Receipt Date: 20120426
  Transmission Date: 20120825
  Serious: Yes (Hospitalization)
  Sender: FDA-Public Use
  Company Number: FR-BRISTOL-MYERS SQUIBB COMPANY-16559064

PATIENT
  Age: 85 Year
  Sex: Male

DRUGS (6)
  1. BISOPROLOL FUMARATE [Concomitant]
  2. CALCIPARINE [Suspect]
     Dosage: 1DF: 0.3 ML
  3. COUMADIN [Suspect]
     Route: 048
     Dates: start: 20120201
  4. ATORVASTATIN [Concomitant]
  5. LASIX [Concomitant]
  6. ASPIRIN [Suspect]
     Dosage: POWDER FOR ORAL SUSPENSION
     Route: 048

REACTIONS (3)
  - HAEMATEMESIS [None]
  - RENAL IMPAIRMENT [None]
  - GASTROINTESTINAL HAEMORRHAGE [None]
